FAERS Safety Report 14040312 (Version 9)
Quarter: 2018Q1

REPORT INFORMATION
  Report Type: Report from Study
  Country: US (occurrence: US)
  Receive Date: 20171004
  Receipt Date: 20180213
  Transmission Date: 20180508
  Serious: Yes (Hospitalization)
  Sender: FDA-Public Use
  Company Number: US-ACTELION-A-US2017-158585

PATIENT
  Age: 61 Year
  Sex: Male
  Weight: 74.38 kg

DRUGS (14)
  1. VELETRI [Suspect]
     Active Substance: EPOPROSTENOL
     Indication: PULMONARY HYPERTENSION
     Dosage: 18 NG/KG, PER MIN
     Route: 042
     Dates: start: 20170830
  2. VELETRI [Suspect]
     Active Substance: EPOPROSTENOL
     Dosage: 22 NG/KG, PER MIN
     Route: 042
  3. OPSUMIT [Suspect]
     Active Substance: MACITENTAN
     Indication: PULMONARY HYPERTENSION
     Dosage: 10 MG, QD
     Route: 048
     Dates: start: 20160728, end: 201708
  4. PREDNISONE. [Concomitant]
     Active Substance: PREDNISONE
     Dosage: 10 MG, UNK
  5. VALCYTE [Concomitant]
     Active Substance: VALGANCICLOVIR HYDROCHLORIDE
     Dosage: 450 MG, UNK
  6. NOVOLOG [Concomitant]
     Active Substance: INSULIN ASPART
  7. PANTOPRAZOLE [Concomitant]
     Active Substance: PANTOPRAZOLE
     Dosage: 40 MG, UNK
  8. DOXAZOSIN [Concomitant]
     Active Substance: DOXAZOSIN\DOXAZOSIN MESYLATE
     Dosage: 4 MG, UNK
  9. XANAX [Concomitant]
     Active Substance: ALPRAZOLAM
     Dosage: 0.25 MG, UNK
  10. ADCIRCA [Concomitant]
     Active Substance: TADALAFIL
  11. VELETRI [Suspect]
     Active Substance: EPOPROSTENOL
     Dosage: 14 NG/KG, PER MIN
     Route: 042
     Dates: start: 201708
  12. NYSTATIN. [Concomitant]
     Active Substance: NYSTATIN
  13. TACROLIMUS. [Concomitant]
     Active Substance: TACROLIMUS
     Dosage: 1 MG, UNK
  14. NEBUPENT [Concomitant]
     Active Substance: PENTAMIDINE ISETHIONATE
     Dosage: 300 MG, UNK

REACTIONS (15)
  - Ascites [Unknown]
  - Feeding disorder [Unknown]
  - Abdominal distension [Unknown]
  - Nausea [Recovering/Resolving]
  - Erythema [Unknown]
  - Liver transplant [Recovered/Resolved]
  - Transplant evaluation [Recovered/Resolved]
  - Headache [Unknown]
  - Weight decreased [Unknown]
  - White blood cell count decreased [Unknown]
  - Abdominal cavity drainage [Unknown]
  - Vomiting [Unknown]
  - Retching [Unknown]
  - Flushing [Unknown]
  - Adverse drug reaction [Unknown]

NARRATIVE: CASE EVENT DATE: 201708
